FAERS Safety Report 23187753 (Version 1)
Quarter: 2023Q4

REPORT INFORMATION
  Report Type: Spontaneous
  Country: ES (occurrence: ES)
  Receive Date: 20231115
  Receipt Date: 20231115
  Transmission Date: 20240110
  Serious: Yes (Hospitalization)
  Sender: FDA-Public Use
  Company Number: ES-MYLANLABS-2023M1121438

PATIENT
  Age: 21 Year
  Sex: Female

DRUGS (15)
  1. RISPERIDONE [Suspect]
     Active Substance: RISPERIDONE
     Indication: Antipsychotic therapy
     Dosage: UNK
     Route: 065
  2. ARIPIPRAZOLE [Suspect]
     Active Substance: ARIPIPRAZOLE
     Indication: Antipsychotic therapy
     Dosage: UNK
     Route: 065
  3. OLANZAPINE [Suspect]
     Active Substance: OLANZAPINE
     Indication: Antipsychotic therapy
     Dosage: UNK
     Route: 065
  4. OLANZAPINE [Suspect]
     Active Substance: OLANZAPINE
     Dosage: UNK, (LATER, THERAPY WAS RE-INITIATED)
     Route: 065
  5. CLOZAPINE [Suspect]
     Active Substance: CLOZAPINE
     Indication: Antipsychotic therapy
     Dosage: 25 MILLIGRAM, QD
     Route: 065
  6. CLOZAPINE [Suspect]
     Active Substance: CLOZAPINE
     Indication: Neuropsychological symptoms
  7. LAMOTRIGINE [Suspect]
     Active Substance: LAMOTRIGINE
     Indication: Antipsychotic therapy
     Dosage: 75 MILLIGRAM, QD
     Route: 065
  8. LAMOTRIGINE [Suspect]
     Active Substance: LAMOTRIGINE
     Indication: Neuropsychological symptoms
  9. LITHIUM [Concomitant]
     Active Substance: LITHIUM
     Indication: Antipsychotic therapy
     Dosage: 800 MILLIGRAM, QD
     Route: 065
  10. LITHIUM [Concomitant]
     Active Substance: LITHIUM
     Indication: Neuropsychological symptoms
  11. VALPROIC ACID [Concomitant]
     Active Substance: VALPROIC ACID
     Indication: Antipsychotic therapy
     Dosage: 400 MILLIGRAM, QD
     Route: 065
  12. VALPROIC ACID [Concomitant]
     Active Substance: VALPROIC ACID
     Indication: Neuropsychological symptoms
  13. Bamocaftor;Ivacaftor;Tezacaftor [Concomitant]
     Indication: Cystic fibrosis
     Dosage: UNK
     Route: 065
  14. QUETIAPINE [Concomitant]
     Active Substance: QUETIAPINE
     Indication: Antipsychotic therapy
     Dosage: 75 MILLIGRAM, QD
     Route: 065
  15. QUETIAPINE [Concomitant]
     Active Substance: QUETIAPINE
     Indication: Neuropsychological symptoms

REACTIONS (9)
  - Galactorrhoea [Unknown]
  - Nystagmus [Unknown]
  - Oedema [Unknown]
  - Gait disturbance [Unknown]
  - Mental disorder [Unknown]
  - Deja vu [Unknown]
  - Salivary hypersecretion [Unknown]
  - Discomfort [Unknown]
  - Rash [Unknown]
